FAERS Safety Report 12768825 (Version 1)
Quarter: 2016Q3

REPORT INFORMATION
  Report Type: Spontaneous
  Country: US (occurrence: US)
  Receive Date: 20160921
  Receipt Date: 20160921
  Transmission Date: 20161109
  Serious: No
  Sender: FDA-Public Use
  Company Number: US-JAZZ-2016-US-010218

PATIENT
  Age: 64 Year
  Sex: Female
  Weight: 66.66 kg

DRUGS (30)
  1. BENADRYL [Concomitant]
     Active Substance: DIPHENHYDRAMINE HYDROCHLORIDE
  2. BIOTIN [Concomitant]
     Active Substance: BIOTIN
  3. LORTAB [Concomitant]
     Active Substance: ACETAMINOPHEN\HYDROCODONE BITARTRATE
  4. LOSARTAN POTASSIUM. [Concomitant]
     Active Substance: LOSARTAN POTASSIUM
  5. VITAMIN B6 [Concomitant]
     Active Substance: PYRIDOXINE HYDROCHLORIDE
  6. CALCIUM CARBONATE. [Concomitant]
     Active Substance: CALCIUM CARBONATE
  7. ESTRADIOL. [Concomitant]
     Active Substance: ESTRADIOL
  8. GLUCOSAMINE AND CHONDROITIN [Concomitant]
     Active Substance: CHONDROITIN SULFATE (BOVINE)\GLUCOSAMINE HYDROCHLORIDE
  9. MULTIVITAMINS [Concomitant]
     Active Substance: VITAMINS
  10. NEURONTIN [Concomitant]
     Active Substance: GABAPENTIN
  11. PHENTERMINE HCL [Concomitant]
     Active Substance: PHENTERMINE HYDROCHLORIDE
  12. PROBIOTIC [Concomitant]
     Active Substance: PROBIOTICS NOS
  13. CELEBREX [Concomitant]
     Active Substance: CELECOXIB
  14. MAGNESIUM OXIDE. [Concomitant]
     Active Substance: MAGNESIUM OXIDE
  15. VITAMIN B12 [Concomitant]
     Active Substance: CYANOCOBALAMIN
  16. VITAMIN C [Concomitant]
     Active Substance: ASCORBIC ACID
  17. VITAMIN D3 [Concomitant]
     Active Substance: CHOLECALCIFEROL
  18. XYREM [Suspect]
     Active Substance: SODIUM OXYBATE
     Indication: FIBROMYALGIA
     Dosage: 2.25 G, BID
     Route: 048
     Dates: start: 201605, end: 201605
  19. NORVASC [Concomitant]
     Active Substance: AMLODIPINE BESYLATE
  20. PROGESTERONE. [Concomitant]
     Active Substance: PROGESTERONE
  21. PREMPRO [Concomitant]
     Active Substance: ESTROGENS, CONJUGATED\MEDROXYPROGESTERONE ACETATE
  22. TRIAMTERENE AND HYDROCHLOROTHIAZIDE [Concomitant]
     Active Substance: HYDROCHLOROTHIAZIDE\TRIAMTERENE
  23. UBIQUINONE [Concomitant]
     Active Substance: UBIDECARENONE
  24. ZOLOFT [Concomitant]
     Active Substance: SERTRALINE HYDROCHLORIDE
  25. ACYCLOVIR. [Concomitant]
     Active Substance: ACYCLOVIR
  26. GLUTATHIONE [Concomitant]
     Active Substance: GLUTATHIONE
  27. TESTOSTERONE. [Concomitant]
     Active Substance: TESTOSTERONE
  28. NAC [Concomitant]
  29. PROTONIX [Concomitant]
     Active Substance: PANTOPRAZOLE SODIUM
  30. ZOCOR [Concomitant]
     Active Substance: SIMVASTATIN

REACTIONS (3)
  - Feeling abnormal [Unknown]
  - Nervousness [Unknown]
  - Dyspnoea [Unknown]

NARRATIVE: CASE EVENT DATE: 201605
